FAERS Safety Report 11612686 (Version 2)
Quarter: 2015Q4

REPORT INFORMATION
  Report Type: Spontaneous
  Country: US (occurrence: US)
  Receive Date: 20151008
  Receipt Date: 20151015
  Transmission Date: 20160304
  Serious: Yes (Other)
  Sender: FDA-Public Use
  Company Number: US-ELI_LILLY_AND_COMPANY-US201509009754

PATIENT
  Sex: Male

DRUGS (1)
  1. EFFIENT [Suspect]
     Active Substance: PRASUGREL HYDROCHLORIDE
     Indication: STENT PLACEMENT
     Dosage: UNK UNK, UNKNOWN
     Route: 065
     Dates: start: 201501

REACTIONS (10)
  - Cardiac disorder [Unknown]
  - Carotid artery occlusion [Unknown]
  - Device occlusion [Unknown]
  - Thrombotic thrombocytopenic purpura [Unknown]
  - Dizziness [Unknown]
  - Hypoaesthesia [Unknown]
  - Vision blurred [Unknown]
  - Off label use [Unknown]
  - Dyskinesia [Unknown]
  - Palpitations [Unknown]
